FAERS Safety Report 4563961-6 (Version None)
Quarter: 2005Q1

REPORT INFORMATION
  Report Type: 
  Country: None (occurrence: None)
  Receive Date: 20050127
  Receipt Date: 20050116
  Transmission Date: 20050727
  Serious: Yes (Hospitalization)
  Sender: FDA-Public Use
  Company Number: 2005014825

PATIENT
  Age: 14 Year
  Sex: Female
  Weight: 45.3597 kg

DRUGS (1)
  1. DRAMAMINE DROWSY FORMULAT (DIMENHYDRINATE) [Suspect]
     Indication: EUPHORIC MOOD
     Dosage: ONCE, ORAL
     Route: 048
     Dates: start: 20050115, end: 20050115

REACTIONS (4)
  - CONVULSION [None]
  - DELUSION [None]
  - DRUG ABUSER [None]
  - PSYCHOTIC DISORDER [None]
